FAERS Safety Report 5949905-0 (Version None)
Quarter: 2008Q4

REPORT INFORMATION
  Report Type: 
  Country: None (occurrence: None)
  Receive Date: 20081112
  Receipt Date: 20081029
  Transmission Date: 20090506
  Serious: Yes (Hospitalization, Other)
  Sender: FDA-Public Use
  Company Number: US-ELI_LILLY_AND_COMPANY-US200810007181

PATIENT
  Sex: Female

DRUGS (4)
  1. CYMBALTA [Suspect]
     Dosage: 60 MG, DAILY (1/D)
     Dates: start: 20061101
  2. LORTAB [Concomitant]
     Indication: PAIN
  3. MORPHINE SULFATE INJ [Concomitant]
     Indication: NEUROPATHY PERIPHERAL
  4. VALIUM [Concomitant]

REACTIONS (6)
  - AMENORRHOEA [None]
  - EPIDURAL ANAESTHESIA [None]
  - FEELING ABNORMAL [None]
  - MENOPAUSE [None]
  - PARAESTHESIA [None]
  - SPINAL FUSION SURGERY [None]
